FAERS Safety Report 7200126-3 (Version None)
Quarter: 2010Q4

REPORT INFORMATION
  Report Type: 
  Country: None (occurrence: None)
  Receive Date: 20101228
  Receipt Date: 20101212
  Transmission Date: 20110411
  Serious: No
  Sender: FDA-Public Use
  Company Number: US-B.I. PHARMACEUTICALS,INC./RIDGEFIELD-2010-BP-14258BP

PATIENT
  Sex: Female

DRUGS (13)
  1. PRADAXA [Suspect]
     Indication: ATRIAL FIBRILLATION
     Dosage: 300 MG
     Route: 048
     Dates: start: 20101210
  2. FLECAINIDE [Concomitant]
     Indication: ATRIAL FIBRILLATION
  3. LAMICTAL [Concomitant]
     Indication: BIPOLAR DISORDER
  4. XANAX [Concomitant]
     Indication: ANXIETY
  5. BUSPAR [Concomitant]
     Indication: ANXIETY
  6. ABILIFY [Concomitant]
     Indication: BIPOLAR DISORDER
  7. GEODON [Concomitant]
     Indication: BIPOLAR DISORDER
  8. LOVASTATIN [Concomitant]
     Indication: BLOOD CHOLESTEROL INCREASED
  9. NEXIUM [Concomitant]
     Indication: GASTROOESOPHAGEAL REFLUX DISEASE
  10. TETRACYCLINE [Concomitant]
     Indication: OVERGROWTH BACTERIAL
     Dates: start: 20070101
  11. VITAMIN B-12 [Concomitant]
     Indication: OVERGROWTH BACTERIAL
     Dates: start: 20070101
  12. TOPAMAX [Concomitant]
     Indication: WEIGHT INCREASED
     Dates: start: 20101101
  13. DIAZIDE [Concomitant]
     Indication: INNER EAR DISORDER

REACTIONS (1)
  - FAECES DISCOLOURED [None]
